FAERS Safety Report 18276418 (Version 1)
Quarter: 2020Q3

REPORT INFORMATION
  Report Type: Spontaneous
  Country: CA (occurrence: CA)
  Receive Date: 20200917
  Receipt Date: 20200917
  Transmission Date: 20201103
  Serious: Yes (Hospitalization, Other)
  Sender: FDA-Public Use
  Company Number: CA-ASTRAZENECA-2020SF16711

PATIENT
  Age: 70 Year
  Sex: Male

DRUGS (6)
  1. DURVALUMAB. [Suspect]
     Active Substance: DURVALUMAB
     Indication: PANCREATIC CARCINOMA
     Dosage: 1500.0MG UNKNOWN
     Route: 041
  2. GEMCITABINE. [Suspect]
     Active Substance: GEMCITABINE
     Indication: PANCREATIC CARCINOMA
     Dosage: 2200.0MG UNKNOWN
     Route: 041
  3. ABRAXANE [Suspect]
     Active Substance: PACLITAXEL
     Indication: PANCREATIC CARCINOMA
     Dosage: 275.0MG UNKNOWN
     Route: 041
  4. TICILIMUMAB [Suspect]
     Active Substance: TREMELIMUMAB
     Indication: ANTICOAGULANT THERAPY
     Dosage: 75.0MG UNKNOWN
     Route: 041
  5. DURVALUMAB. [Suspect]
     Active Substance: DURVALUMAB
     Indication: PANCREATIC CARCINOMA
     Dosage: 1500.0MG UNKNOWN
     Route: 041
  6. DALTEPARIN SODIUM [Concomitant]
     Active Substance: DALTEPARIN SODIUM
     Indication: PANCREATIC CARCINOMA

REACTIONS (4)
  - Gastrointestinal haemorrhage [Not Recovered/Not Resolved]
  - Upper gastrointestinal haemorrhage [Not Recovered/Not Resolved]
  - Pancytopenia [Not Recovered/Not Resolved]
  - Sepsis [Not Recovered/Not Resolved]
